FAERS Safety Report 22291771 (Version 1)
Quarter: 2023Q2

REPORT INFORMATION
  Report Type: Spontaneous
  Country: US (occurrence: None)
  Receive Date: 20230505
  Receipt Date: 20230505
  Transmission Date: 20230722
  Serious: Yes (Hospitalization)
  Sender: FDA-Public Use
  Company Number: None

PATIENT
  Age: 6 Year
  Sex: Female
  Weight: 20.2 kg

DRUGS (1)
  1. ASPARLAS [Suspect]
     Active Substance: CALASPARGASE PEGOL-MKNL

REACTIONS (5)
  - Infusion related reaction [None]
  - Lip swelling [None]
  - Vomiting [None]
  - Therapy non-responder [None]
  - Oropharyngeal pain [None]

NARRATIVE: CASE EVENT DATE: 20230316
